FAERS Safety Report 10273216 (Version 1)
Quarter: 2014Q3

REPORT INFORMATION
  Report Type: Report from Study
  Country: US (occurrence: US)
  Receive Date: 20140702
  Receipt Date: 20140702
  Transmission Date: 20150326
  Serious: Yes (Death, Hospitalization)
  Sender: FDA-Public Use
  Company Number: PHHY2014US078200

PATIENT
  Age: 55 Year
  Sex: Female

DRUGS (10)
  1. OXALIPLATIN. [Suspect]
     Active Substance: OXALIPLATIN
     Indication: COLON CANCER
     Dosage: 50 MG/M2, ONE PER TWO WEEK
     Route: 042
     Dates: start: 20110907, end: 20120222
  2. OXALIPLATIN. [Suspect]
     Active Substance: OXALIPLATIN
     Dosage: 50 MG/M2, ONE PER TWO WEEK
     Route: 042
  3. 5-FLUOROURACIL [Suspect]
     Active Substance: FLUOROURACIL
     Dosage: 270 MG/M2
     Route: 040
  4. BEVACIZUMAB [Suspect]
     Active Substance: BEVACIZUMAB
     Dosage: 2.5 MG/KG, EVERY WEEK
     Route: 042
  5. LEUCOVORIN CALCIUM. [Suspect]
     Active Substance: LEUCOVORIN CALCIUM
     Indication: COLON CANCER
     Dosage: 400 MG/M2
     Dates: start: 20110907, end: 20120222
  6. 5-FLUOROURACIL [Suspect]
     Active Substance: FLUOROURACIL
     Dosage: 1600 MG/M2, ONE PER TWO WEEK
     Route: 042
  7. BEVACIZUMAB [Suspect]
     Active Substance: BEVACIZUMAB
     Indication: COLON CANCER
     Dosage: 2.5 MG/KG, EVERY WEEK
     Route: 042
     Dates: start: 20110907, end: 20120222
  8. LEUCOVORIN CALCIUM. [Suspect]
     Active Substance: LEUCOVORIN CALCIUM
     Dosage: 400 MG/M2
  9. 5-FLUOROURACIL [Suspect]
     Active Substance: FLUOROURACIL
     Indication: COLON CANCER
     Dosage: 1600 MG/M2, ONE PER TWO WEEK
     Route: 042
     Dates: start: 20110907, end: 20120222
  10. 5-FLUOROURACIL [Suspect]
     Active Substance: FLUOROURACIL
     Dosage: 270 MG/M2
     Route: 040
     Dates: start: 20110907, end: 20120222

REACTIONS (10)
  - Respiratory distress [Fatal]
  - Oropharyngeal pain [Unknown]
  - Neutropenia [Fatal]
  - Thrombocytopenia [Fatal]
  - Septic shock [Unknown]
  - Fatigue [Fatal]
  - Mucosal inflammation [Unknown]
  - Pancytopenia [Fatal]
  - Dehydration [Fatal]
  - Asthenia [Unknown]

NARRATIVE: CASE EVENT DATE: 20120222
